FAERS Safety Report 10068956 (Version 2)
Quarter: 2014Q2

REPORT INFORMATION
  Report Type: Report from Study
  Country: BE (occurrence: BE)
  Receive Date: 20140409
  Receipt Date: 20140424
  Transmission Date: 20141212
  Serious: Yes (Death, Hospitalization)
  Sender: FDA-Public Use
  Company Number: PHHY2014BE043111

PATIENT
  Sex: Male

DRUGS (9)
  1. INDACATEROL [Suspect]
     Indication: CHRONIC OBSTRUCTIVE PULMONARY DISEASE
     Route: 055
  2. ALDACTONE [Concomitant]
     Dosage: 25 MG, QD
     Route: 048
  3. CRESTOR [Concomitant]
     Dosage: 10 MG, QD
     Route: 048
  4. LASIX [Concomitant]
     Dosage: 40 MG, EVERY 2 DAYS
     Route: 048
  5. MEDROL [Concomitant]
     Dosage: 16 MG, EVERY 2 DAYS
     Route: 048
  6. PANTOMED//PANTOPRAZOLE SODIUM SESQUIHYDRATE [Concomitant]
     Dosage: 40 MG, QD
     Route: 048
  7. PLAVIX [Concomitant]
     Dosage: 75 MG, QD
     Route: 048
  8. SELOZOK [Concomitant]
     Dosage: 95 MG, QD
     Route: 048
  9. SPIRIVA [Concomitant]
     Dosage: 18 UG, UNK
     Route: 055

REACTIONS (18)
  - Death [Fatal]
  - Dysphagia [Fatal]
  - Odynophagia [Fatal]
  - General physical health deterioration [Fatal]
  - Atrial flutter [Fatal]
  - Decubitus ulcer [Fatal]
  - Decreased appetite [Unknown]
  - Dyspepsia [Unknown]
  - Weight decreased [Unknown]
  - Diarrhoea [Unknown]
  - Abnormal faeces [Unknown]
  - Dilatation ventricular [Unknown]
  - Corneal opacity [Unknown]
  - Sinus tachycardia [Unknown]
  - Bundle branch block right [Unknown]
  - PCO2 decreased [Unknown]
  - Leukocytosis [Unknown]
  - Crepitations [Unknown]
